FAERS Safety Report 6770812-8 (Version None)
Quarter: 2010Q2

REPORT INFORMATION
  Report Type: 
  Country: None (occurrence: None)
  Receive Date: 20100614
  Receipt Date: 20100614
  Transmission Date: 20101027
  Serious: Yes (Other)
  Sender: FDA-Public Use
  Company Number: None

PATIENT
  Sex: Female

DRUGS (1)
  1. MACROBID [Suspect]
     Indication: URINARY TRACT INFECTION
     Dosage: 100 MG BID PO
     Route: 048
     Dates: start: 20100603

REACTIONS (2)
  - NAUSEA [None]
  - PRODUCT MEASURED POTENCY ISSUE [None]
